FAERS Safety Report 14628398 (Version 4)
Quarter: 2018Q4

REPORT INFORMATION
  Report Type: Spontaneous
  Country: US (occurrence: US)
  Receive Date: 20180312
  Receipt Date: 20181127
  Transmission Date: 20190204
  Serious: No
  Sender: FDA-Public Use
  Company Number: US-BRISTOL-MYERS SQUIBB COMPANY-BMS-2018-021930

PATIENT
  Sex: Male
  Weight: 88.45 kg

DRUGS (1)
  1. YERVOY [Suspect]
     Active Substance: IPILIMUMAB
     Indication: MALIGNANT MELANOMA
     Dosage: 10 MG/KG, UNK
     Route: 042
     Dates: start: 20170921, end: 20171127

REACTIONS (3)
  - Weight decreased [Not Recovered/Not Resolved]
  - Prescribed overdose [Unknown]
  - Mass [Not Recovered/Not Resolved]
